FAERS Safety Report 4727351-5 (Version None)
Quarter: 2005Q3

REPORT INFORMATION
  Report Type: 
  Country: None (occurrence: None)
  Receive Date: 20050727
  Receipt Date: 20050727
  Transmission Date: 20060218
  Serious: Yes (Hospitalization)
  Sender: FDA-Public Use
  Company Number: None

PATIENT
  Age: 78 Year
  Sex: Male
  Weight: 66 kg

DRUGS (17)
  1. WARFARIN [Suspect]
     Indication: ATRIAL FIBRILLATION
     Dosage: 2 MG PO DAILY
     Route: 048
  2. LEVOFLOXACIN [Suspect]
     Indication: PNEUMONIA
     Dosage: 500 MG IV DAILY
     Route: 042
     Dates: start: 20050407, end: 20050410
  3. ALBUTEROL [Concomitant]
  4. FLURISOLIDE [Concomitant]
  5. AEROBID [Concomitant]
  6. DOXEPIN HCL [Concomitant]
  7. ACIPHEX [Concomitant]
  8. ADVAIR DISKUS 100/50 [Concomitant]
  9. ASPIRIN [Concomitant]
  10. TRIAMTERENE AND HYDROCHLOROTHIAZIDE [Concomitant]
  11. MECLIZINE [Concomitant]
  12. LOVASTATIN [Concomitant]
  13. VERELAN [Concomitant]
  14. DIGITEK [Concomitant]
  15. SYNTHROID [Concomitant]
  16. IRON [Concomitant]
  17. HYDROCODONE [Concomitant]

REACTIONS (8)
  - ARTHRALGIA [None]
  - CHRONIC OBSTRUCTIVE PULMONARY DISEASE [None]
  - COAGULOPATHY [None]
  - HEPATIC CONGESTION [None]
  - INTERNATIONAL NORMALISED RATIO INCREASED [None]
  - MALNUTRITION [None]
  - PNEUMONIA [None]
  - RETROPERITONEAL HAEMORRHAGE [None]
